FAERS Safety Report 13028447 (Version 3)
Quarter: 2017Q1

REPORT INFORMATION
  Report Type: Report from Study
  Country: None (occurrence: US)
  Receive Date: 20161214
  Receipt Date: 20170202
  Transmission Date: 20170428
  Serious: Yes (Hospitalization, Other)
  Sender: FDA-Public Use
  Company Number: US-ABBVIE-16K-163-1803590-00

PATIENT
  Age: 65 Year
  Sex: Male
  Weight: 126.21 kg

DRUGS (5)
  1. NORVASC [Concomitant]
     Active Substance: AMLODIPINE BESYLATE
     Indication: HYPERTENSION
  2. HUMIRA [Suspect]
     Active Substance: ADALIMUMAB
     Indication: PSORIATIC ARTHROPATHY
     Route: 058
     Dates: start: 20130110, end: 20160518
  3. HUMIRA [Suspect]
     Active Substance: ADALIMUMAB
     Indication: PSORIASIS
     Route: 058
     Dates: start: 20160723, end: 20161026
  4. HUMIRA [Suspect]
     Active Substance: ADALIMUMAB
     Route: 058
     Dates: start: 20161205
  5. LISINOPRIL. [Concomitant]
     Active Substance: LISINOPRIL
     Indication: HYPERTENSION

REACTIONS (16)
  - Joint dislocation [Recovered/Resolved]
  - Joint arthroplasty [Unknown]
  - Fall [Recovered/Resolved]
  - Humerus fracture [Recovered/Resolved]
  - Osteoarthritis [Not Recovered/Not Resolved]
  - Medical device implantation [Unknown]
  - Bone loss [Recovered/Resolved]
  - Meniscus injury [Not Recovered/Not Resolved]
  - Electric shock [Recovered/Resolved]
  - Radius fracture [Recovered/Resolved]
  - Muscular weakness [Not Recovered/Not Resolved]
  - Pain [Not Recovered/Not Resolved]
  - Loss of consciousness [Recovered/Resolved]
  - Pulmonary embolism [Recovered/Resolved]
  - Tooth fracture [Recovered/Resolved]
  - Blood calcium decreased [Recovered/Resolved]

NARRATIVE: CASE EVENT DATE: 2016
